FAERS Safety Report 6346096-1 (Version None)
Quarter: 2009Q3

REPORT INFORMATION
  Report Type: 
  Country: None (occurrence: None)
  Receive Date: 20090909
  Receipt Date: 20090827
  Transmission Date: 20100115
  Serious: Yes (Other)
  Sender: FDA-Public Use
  Company Number: US-PFIZER INC-2009242135

PATIENT
  Sex: Female
  Weight: 90.703 kg

DRUGS (7)
  1. CHANTIX [Suspect]
     Indication: SMOKING CESSATION THERAPY
     Dosage: 1 MG, 2X/DAY
     Route: 048
     Dates: start: 20090413, end: 20090710
  2. CHANTIX [Suspect]
     Indication: NICOTINE DEPENDENCE
  3. PIROXICAM [Concomitant]
     Dosage: 2 MG, 1X/DAY
  4. PREMARIN [Concomitant]
     Dosage: 0.3 MG, 1X/DAY
  5. CRESTOR [Concomitant]
     Dosage: 10 MG, ALTERNATE DAY
  6. MEDROXYPROGESTERONE ACETATE [Concomitant]
     Dosage: 2.5 MG, 1X/DAY
  7. HYDROCODONE [Concomitant]
     Dosage: UNK

REACTIONS (8)
  - AGGRESSION [None]
  - AGITATION [None]
  - ANGER [None]
  - DEPRESSION [None]
  - HOMICIDAL IDEATION [None]
  - IRRITABILITY [None]
  - RESTLESSNESS [None]
  - WEIGHT DECREASED [None]
